FAERS Safety Report 12806399 (Version 2)
Quarter: 2016Q4

REPORT INFORMATION
  Report Type: Spontaneous
  Country: US (occurrence: US)
  Receive Date: 20161004
  Receipt Date: 20161012
  Transmission Date: 20170207
  Serious: No
  Sender: FDA-Public Use
  Company Number: US-UNICHEM LABORATORIES LIMITED-UCM201512-000888

PATIENT
  Sex: Female
  Weight: 67.13 kg

DRUGS (2)
  1. HYDROCHLOROTHIAZIDE. [Suspect]
     Active Substance: HYDROCHLOROTHIAZIDE
     Indication: HYPERTENSION
  2. SPIRONOLACTONE. [Suspect]
     Active Substance: SPIRONOLACTONE
     Indication: HYPERTENSION

REACTIONS (7)
  - Pollakiuria [Unknown]
  - Fatigue [Unknown]
  - Feeling abnormal [Unknown]
  - Product physical issue [Unknown]
  - Poor quality sleep [Unknown]
  - Blood potassium increased [Unknown]
  - Drug ineffective [Unknown]
